FAERS Safety Report 10146560 (Version 1)
Quarter: 2014Q2

REPORT INFORMATION
  Report Type: Spontaneous
  Country: BR (occurrence: BR)
  Receive Date: 20140501
  Receipt Date: 20140501
  Transmission Date: 20141212
  Serious: Yes (Other)
  Sender: FDA-Public Use
  Company Number: BR-ASTELLAS-2014US004480

PATIENT
  Sex: Male

DRUGS (2)
  1. TARCEVA [Suspect]
     Indication: LUNG NEOPLASM
     Route: 065
     Dates: start: 201311
  2. TARCEVA [Suspect]
     Dosage: EVERY OTHER DAY (1 IN 2 D)
     Route: 065

REACTIONS (3)
  - Weight increased [Unknown]
  - Rash [Recovering/Resolving]
  - Acne [Not Recovered/Not Resolved]
